FAERS Safety Report 5062430-7 (Version None)
Quarter: 2006Q3

REPORT INFORMATION
  Report Type: 
  Country: None (occurrence: None)
  Receive Date: 20060721
  Receipt Date: 20060703
  Transmission Date: 20061208
  Serious: Yes (Other)
  Sender: FDA-Public Use
  Company Number: FR200604004069

PATIENT
  Age: 67 Year
  Sex: Female

DRUGS (2)
  1. FORTEO [Suspect]
     Indication: OSTEOPOROSIS
     Dosage: 20 UG DAILY (1/D)SUBCUTANEOUS
     Route: 058
     Dates: start: 20060123
  2. FORTEO PEN (FORTEO PEN) [Concomitant]

REACTIONS (5)
  - ANXIETY [None]
  - FEELING ABNORMAL [None]
  - HYPOGLYCAEMIA [None]
  - INSOMNIA [None]
  - TREMOR [None]
